FAERS Safety Report 9450641 (Version 1)
Quarter: 2013Q3

REPORT INFORMATION
  Report Type: Spontaneous
  Country: US (occurrence: US)
  Receive Date: 20130809
  Receipt Date: 20130809
  Transmission Date: 20140515
  Serious: Yes (Life-Threatening, Hospitalization)
  Sender: FDA-Public Use
  Company Number: US-BAYER-2013-096143

PATIENT
  Age: 23 Year
  Sex: Male

DRUGS (2)
  1. ACETYLSALICYLIC ACID (} 100 MG) [Suspect]
     Dosage: 325 MG, UNK
  2. NAPROXEN SODIUM ({= 220 MG) [Suspect]
     Indication: HEADACHE
     Dosage: 440 MG, ONCE

REACTIONS (2)
  - Analgesic asthma syndrome [Recovered/Resolved]
  - Status asthmaticus [Recovered/Resolved]
